FAERS Safety Report 18174798 (Version 1)
Quarter: 2020Q3

REPORT INFORMATION
  Report Type: Spontaneous
  Country: JP (occurrence: JP)
  Receive Date: 20200820
  Receipt Date: 20200820
  Transmission Date: 20201103
  Serious: Yes (Other)
  Sender: FDA-Public Use
  Company Number: JP-PFIZER INC-2020322920

PATIENT
  Age: 6 Decade

DRUGS (2)
  1. INLYTA [Suspect]
     Active Substance: AXITINIB
  2. BAVENCIO [Concomitant]
     Active Substance: AVELUMAB

REACTIONS (2)
  - Hypothyroidism [Unknown]
  - Cardiac failure [Unknown]
